FAERS Safety Report 9421027 (Version 2)
Quarter: 2013Q3

REPORT INFORMATION
  Report Type: Spontaneous
  Country: US (occurrence: US)
  Receive Date: 20130725
  Receipt Date: 20130814
  Transmission Date: 20140515
  Serious: No
  Sender: FDA-Public Use
  Company Number: US-UCBSA-092006

PATIENT
  Age: 20 Year
  Sex: Female
  Weight: 66 kg

DRUGS (2)
  1. CIMZIA [Suspect]
     Indication: CROHN^S DISEASE
     Dates: start: 20130301
  2. 6-MP [Concomitant]

REACTIONS (1)
  - Haemorrhage [Recovered/Resolved]
